FAERS Safety Report 6563153-5 (Version None)
Quarter: 2010Q1

REPORT INFORMATION
  Report Type: 
  Country: None (occurrence: None)
  Receive Date: 20100130
  Receipt Date: 20091210
  Transmission Date: 20100710
  Serious: No
  Sender: FDA-Public Use
  Company Number: US-ABBOTT-09P-163-0613685-00

PATIENT
  Sex: Female

DRUGS (1)
  1. HUMIRA [Suspect]
     Indication: COLITIS ULCERATIVE
     Dosage: 80 MG DAY 2
     Dates: start: 20091204

REACTIONS (6)
  - CHILLS [None]
  - FATIGUE [None]
  - INJECTION SITE PAIN [None]
  - PAIN [None]
  - RHINORRHOEA [None]
  - SINUS CONGESTION [None]
